FAERS Safety Report 10062281 (Version 1)
Quarter: 2014Q2

REPORT INFORMATION
  Report Type: Spontaneous
  Country: US (occurrence: US)
  Receive Date: 20140407
  Receipt Date: 20140407
  Transmission Date: 20141212
  Serious: Yes (Other)
  Sender: FDA-Public Use
  Company Number: US-PFIZER INC-2014096417

PATIENT
  Sex: Female

DRUGS (1)
  1. EFFEXOR XR [Suspect]
     Dosage: UNK
     Dates: start: 2004

REACTIONS (5)
  - Rheumatoid arthritis [Unknown]
  - Headache [Unknown]
  - Malaise [Unknown]
  - Therapeutic response changed [Unknown]
  - Pre-existing condition improved [Unknown]
